FAERS Safety Report 5225789-3 (Version None)
Quarter: 2007Q1

REPORT INFORMATION
  Report Type: 
  Country: None (occurrence: None)
  Receive Date: 20070130
  Receipt Date: 20070130
  Transmission Date: 20070707
  Serious: Yes (Hospitalization)
  Sender: FDA-Public Use
  Company Number: None

PATIENT
  Sex: Male
  Weight: 83.4619 kg

DRUGS (10)
  1. LITHIUM CARBONATE [Suspect]
     Indication: BIPOLAR I DISORDER
     Dosage: 600MG TWICE DAILY PO
     Route: 048
     Dates: start: 20060908, end: 20060927
  2. BISACODYL [Concomitant]
  3. CLOZAPINE [Concomitant]
  4. DOCUSATE [Concomitant]
  5. LEVOTHYROXINE SODIUM [Concomitant]
  6. MEGESTROL ACETATE [Concomitant]
  7. OMEPRAZOLE [Concomitant]
  8. MULTIVITS [Concomitant]
  9. MOM [Concomitant]
  10. SENNA [Concomitant]

REACTIONS (19)
  - ABDOMINAL DISTENSION [None]
  - AGITATION [None]
  - BLOOD CREATININE INCREASED [None]
  - BLOOD THYROID STIMULATING HORMONE DECREASED [None]
  - BLOOD UREA INCREASED [None]
  - CONSTIPATION [None]
  - DELIRIUM [None]
  - DYSPNOEA [None]
  - GLOMERULAR FILTRATION RATE DECREASED [None]
  - HEADACHE [None]
  - HYPERNATRAEMIA [None]
  - HYPOTENSION [None]
  - INCONTINENCE [None]
  - MANIA [None]
  - NEPHROGENIC DIABETES INSIPIDUS [None]
  - SOMNOLENCE [None]
  - TACHYCARDIA [None]
  - TREATMENT NONCOMPLIANCE [None]
  - VOMITING [None]
